FAERS Safety Report 13243245 (Version 1)
Quarter: 2017Q1

REPORT INFORMATION
  Report Type: Report from Study
  Country: None (occurrence: US)
  Receive Date: 20170216
  Receipt Date: 20170216
  Transmission Date: 20170428
  Serious: Yes (Other)
  Sender: FDA-Public Use
  Company Number: US-ABBVIE-17K-163-1870388-00

PATIENT
  Age: 38 Year
  Sex: Male

DRUGS (2)
  1. HUMIRA [Suspect]
     Active Substance: ADALIMUMAB
     Route: 058
     Dates: start: 201701
  2. HUMIRA [Suspect]
     Active Substance: ADALIMUMAB
     Indication: RHEUMATOID ARTHRITIS
     Route: 058
     Dates: start: 20161220, end: 201701

REACTIONS (15)
  - Cough [Unknown]
  - Chills [Recovered/Resolved]
  - Cough [Recovered/Resolved]
  - Drug ineffective [Unknown]
  - Mouth injury [Unknown]
  - Rhinorrhoea [Unknown]
  - Respiratory tract congestion [Recovered/Resolved]
  - Impaired healing [Unknown]
  - Nasopharyngitis [Unknown]
  - Pain [Recovered/Resolved]
  - Arthralgia [Unknown]
  - Pain [Unknown]
  - Fatigue [Unknown]
  - Joint stiffness [Unknown]
  - Joint swelling [Unknown]

NARRATIVE: CASE EVENT DATE: 201612
